FAERS Safety Report 15088227 (Version 1)
Quarter: 2018Q3

REPORT INFORMATION
  Report Type: Spontaneous
  Country: GR (occurrence: GR)
  Receive Date: 20180629
  Receipt Date: 20180629
  Transmission Date: 20181010
  Serious: Yes (Life-Threatening, Other)
  Sender: FDA-Public Use
  Company Number: GR-TEVA-2018-GR-917183

PATIENT
  Age: 63 Year
  Sex: Male
  Weight: 70 kg

DRUGS (4)
  1. EMTHEXATE [Suspect]
     Active Substance: METHOTREXATE
     Indication: BLADDER CANCER
     Dosage: 50 MILLIGRAM DAILY;
     Route: 042
     Dates: start: 20140319, end: 20140319
  2. HOSPIRA VINBLASTINE SULPHATE [Concomitant]
     Indication: BLADDER CANCER
     Dosage: 50 MILLIGRAM DAILY;
     Route: 042
     Dates: start: 20140319, end: 20140319
  3. CISPLATIN/HOSPIRA [Suspect]
     Active Substance: CISPLATIN
     Indication: BLADDER CANCER
     Dosage: 100 MILLIGRAM DAILY;
     Route: 042
     Dates: start: 20140320, end: 20140320
  4. ADRIBLASTINE [Concomitant]
     Active Substance: DOXORUBICIN
     Indication: BLADDER CANCER
     Dosage: 50 MILLIGRAM DAILY;
     Route: 042
     Dates: start: 20140320, end: 20140320

REACTIONS (2)
  - Posterior reversible encephalopathy syndrome [Not Recovered/Not Resolved]
  - Off label use [Recovered/Resolved]

NARRATIVE: CASE EVENT DATE: 20140319
